FAERS Safety Report 9272704 (Version 2)
Quarter: 2013Q2

REPORT INFORMATION
  Report Type: Spontaneous
  Country: US (occurrence: US)
  Receive Date: 20130506
  Receipt Date: 20130517
  Transmission Date: 20140414
  Serious: Yes (Hospitalization)
  Sender: FDA-Public Use
  Company Number: US-BRISTOL-MYERS SQUIBB COMPANY-18836742

PATIENT
  Age: 64 Year
  Sex: Male
  Weight: 96.14 kg

DRUGS (15)
  1. BYDUREON [Suspect]
     Route: 058
     Dates: start: 2013
  2. PLAVIX [Concomitant]
  3. LASIX [Concomitant]
  4. HUMALOG [Concomitant]
  5. LEVEMIR [Concomitant]
  6. METFORMIN [Concomitant]
  7. LOSARTAN [Concomitant]
  8. ZOCOR [Concomitant]
  9. LANOXIN [Concomitant]
  10. LOPRESSOR [Concomitant]
  11. TRICOR [Concomitant]
  12. ASPIRIN [Concomitant]
  13. VITAMIN D [Concomitant]
  14. MULTIVITAMIN [Concomitant]
  15. TESTOSTERONE [Concomitant]
     Dosage: CREAM

REACTIONS (5)
  - Cardiac failure congestive [Unknown]
  - Nausea [Not Recovered/Not Resolved]
  - Injection site haemorrhage [Not Recovered/Not Resolved]
  - Drug dose omission [Unknown]
  - Product quality issue [Unknown]
